FAERS Safety Report 7424213-X (Version None)
Quarter: 2011Q2

REPORT INFORMATION
  Report Type: 
  Country: None (occurrence: None)
  Receive Date: 20110411
  Receipt Date: 20110328
  Transmission Date: 20111010
  Serious: Yes (Disabling)
  Sender: FDA-Public Use
  Company Number: 2011MA003132

PATIENT

DRUGS (1)
  1. METOCLOPRAMIDE HCL [Suspect]
     Indication: PRODUCT USED FOR UNKNOWN INDICATION
     Dates: start: 20080301, end: 20090301

REACTIONS (12)
  - UNEVALUABLE EVENT [None]
  - ANXIETY [None]
  - EXTRAPYRAMIDAL DISORDER [None]
  - ASTHENIA [None]
  - ACTIVITIES OF DAILY LIVING IMPAIRED [None]
  - ECONOMIC PROBLEM [None]
  - EMOTIONAL DISTRESS [None]
  - MENTAL DISORDER [None]
  - TREMOR [None]
  - INJURY [None]
  - DYSKINESIA [None]
  - EMOTIONAL DISORDER [None]
